FAERS Safety Report 21576740 (Version 1)
Quarter: 2022Q4

REPORT INFORMATION
  Report Type: Spontaneous
  Country: JP (occurrence: JP)
  Receive Date: 20221110
  Receipt Date: 20221110
  Transmission Date: 20230113
  Serious: Yes (Hospitalization)
  Sender: FDA-Public Use
  Company Number: JP-CHUGAI-2022039534AA

PATIENT
  Age: 8 Decade
  Sex: Female
  Weight: 72.5 kg

DRUGS (1)
  1. VABYSMO [Suspect]
     Active Substance: FARICIMAB-SVOA
     Indication: Neovascular age-related macular degeneration
     Route: 031
     Dates: start: 20220829, end: 20220926

REACTIONS (3)
  - Staphylococcal infection [Unknown]
  - Endophthalmitis [Recovering/Resolving]
  - Intraocular pressure decreased [Unknown]

NARRATIVE: CASE EVENT DATE: 20221004
